FAERS Safety Report 4760317-8 (Version None)
Quarter: 2005Q3

REPORT INFORMATION
  Report Type: 
  Country: None (occurrence: None)
  Receive Date: 20050831
  Receipt Date: 20050817
  Transmission Date: 20060218
  Serious: Yes (Hospitalization)
  Sender: FDA-Public Use
  Company Number: 200504504

PATIENT
  Age: 20 Month
  Sex: Male

DRUGS (10)
  1. ALESION (EPINASTINE) SYRUP [Suspect]
     Indication: RHINITIS ALLERGIC
     Dosage: 0.5 G DAILY PO
     Route: 048
     Dates: start: 20050425
  2. THEO-DUR [Concomitant]
  3. ONON [Concomitant]
  4. HOKUNALIN [Concomitant]
  5. POLIO VACCINE [Concomitant]
  6. TICE BCG [Concomitant]
  7. MEASLES VIRUS VACCINE [Concomitant]
  8. DIHTHERIA [Concomitant]
  9. PERTUSSIS [Concomitant]
  10. TATANUS VACCINE [Concomitant]

REACTIONS (1)
  - IDIOPATHIC THROMBOCYTOPENIC PURPURA [None]
